FAERS Safety Report 5129986-7 (Version None)
Quarter: 2006Q4

REPORT INFORMATION
  Report Type: 
  Country: None (occurrence: None)
  Receive Date: 20061013
  Receipt Date: 20060929
  Transmission Date: 20070319
  Serious: Yes (Disabling)
  Sender: FDA-Public Use
  Company Number: 2006RR-03922

PATIENT
  Age: 32 Year
  Sex: Female
  Weight: 69 kg

DRUGS (4)
  1. FLUOXETINE [Suspect]
     Indication: DEPRESSION
     Dosage: 20 MG ORAL
     Route: 048
     Dates: start: 20060608
  2. BECOTIDE [Concomitant]
  3. CETIRIZINE HCL [Concomitant]
  4. SALBUTAMOL [Concomitant]

REACTIONS (2)
  - DISABILITY [None]
  - THERAPEUTIC RESPONSE UNEXPECTED [None]
